FAERS Safety Report 6882279-X (Version None)
Quarter: 2010Q3

REPORT INFORMATION
  Report Type: 
  Country: None (occurrence: None)
  Receive Date: 20100729
  Receipt Date: 20100723
  Transmission Date: 20110219
  Serious: Yes (Hospitalization)
  Sender: FDA-Public Use
  Company Number: GB-PERRIGO-10GB011520

PATIENT
  Age: 63 Year
  Sex: Female
  Weight: 76.2 kg

DRUGS (2)
  1. NAPROXEN SODIUM 12063/0054 250 MG [Suspect]
     Indication: ARTHRALGIA
     Dosage: 250 MG, SINGLE
     Route: 048
     Dates: start: 20100707, end: 20100707
  2. LANSOPRAZOLE [Concomitant]
     Indication: PRODUCT USED FOR UNKNOWN INDICATION
     Dosage: 30 MG, QD
     Route: 048
     Dates: start: 20100705

REACTIONS (1)
  - HEADACHE [None]
